FAERS Safety Report 24391181 (Version 1)
Quarter: 2024Q4

REPORT INFORMATION
  Report Type: Spontaneous
  Country: JP (occurrence: JP)
  Receive Date: 20241003
  Receipt Date: 20241003
  Transmission Date: 20250114
  Serious: Yes (Other)
  Sender: NOVARTIS
  Company Number: JP-002147023-NVSJ2024JP011308

PATIENT
  Age: 59 Year
  Sex: Male

DRUGS (2)
  1. DABRAFENIB [Suspect]
     Active Substance: DABRAFENIB
     Indication: Malignant melanoma
     Dosage: UNK
     Route: 048
  2. TRAMETINIB [Suspect]
     Active Substance: TRAMETINIB
     Indication: Malignant melanoma
     Dosage: UNK
     Route: 048

REACTIONS (5)
  - Diabetes mellitus [Recovering/Resolving]
  - Polydipsia [Unknown]
  - Thirst [Unknown]
  - Weight decreased [Unknown]
  - Impaired insulin secretion [Unknown]
